FAERS Safety Report 7326431-8 (Version None)
Quarter: 2011Q1

REPORT INFORMATION
  Report Type: 
  Country: None (occurrence: None)
  Receive Date: 20110302
  Receipt Date: 20110221
  Transmission Date: 20110831
  Serious: Yes (Life-Threatening, Hospitalization, Other)
  Sender: FDA-Public Use
  Company Number: AT-ELI_LILLY_AND_COMPANY-AT201102006286

PATIENT
  Sex: Female

DRUGS (3)
  1. ASPIRIN [Concomitant]
  2. HEPARIN [Concomitant]
  3. EFFIENT [Suspect]
     Dosage: UNK, UNKNOWN

REACTIONS (3)
  - SHOCK HAEMORRHAGIC [None]
  - HAEMORRHAGE [None]
  - RENAL NEOPLASM [None]
